FAERS Safety Report 7271034-7 (Version None)
Quarter: 2011Q1

REPORT INFORMATION
  Report Type: 
  Country: None (occurrence: None)
  Receive Date: 20110202
  Receipt Date: 20110124
  Transmission Date: 20110831
  Serious: Yes (Hospitalization, Other)
  Sender: FDA-Public Use
  Company Number: US-ASTRAZENECA-2011SE00686

PATIENT
  Age: 62 Year
  Sex: Female
  Weight: 49.9 kg

DRUGS (4)
  1. CELEBREX [Concomitant]
     Indication: ARTHRITIS
  2. MULTIVITAMIN [Concomitant]
  3. VALTREX [Concomitant]
  4. ARIMIDEX [Suspect]
     Indication: BREAST CANCER
     Route: 048
     Dates: start: 20070101, end: 20080101

REACTIONS (6)
  - BREAST CANCER [None]
  - DIZZINESS [None]
  - FEELING COLD [None]
  - BREAST RECONSTRUCTION [None]
  - HOT FLUSH [None]
  - ALOPECIA [None]
